FAERS Safety Report 9481604 (Version 1)
Quarter: 2013Q3

REPORT INFORMATION
  Report Type: Spontaneous
  Country: US (occurrence: US)
  Receive Date: 20130828
  Receipt Date: 20130828
  Transmission Date: 20140515
  Serious: Yes (Hospitalization)
  Sender: FDA-Public Use
  Company Number: US-AMGEN-KDL179588

PATIENT
  Age: 56 Year
  Sex: Female

DRUGS (2)
  1. ENBREL [Suspect]
     Indication: RHEUMATOID ARTHRITIS
     Dosage: UNK UNK, UNK
     Route: 058
     Dates: start: 200304
  2. METHOTREXATE [Concomitant]
     Indication: PSORIASIS
     Dosage: 15 MG, QWK
     Dates: start: 2003

REACTIONS (5)
  - Dehydration [Unknown]
  - Diverticulitis [Unknown]
  - Urinary tract infection [Unknown]
  - Herpes zoster [Unknown]
  - Pneumonia [Recovered/Resolved]
